FAERS Safety Report 7843232-2 (Version None)
Quarter: 2011Q4

REPORT INFORMATION
  Report Type: 
  Country: None (occurrence: None)
  Receive Date: 20111025
  Receipt Date: 20111019
  Transmission Date: 20120403
  Serious: Yes (Other)
  Sender: FDA-Public Use
  Company Number: US-PFIZER INC-2011255365

PATIENT
  Sex: Female

DRUGS (2)
  1. EFFEXOR XR [Suspect]
     Dosage: 35MG
     Dates: end: 20110401
  2. EFFEXOR XR [Suspect]
     Indication: MENOPAUSAL SYMPTOMS
     Dosage: 75MG
     Dates: start: 20080101

REACTIONS (4)
  - PARAESTHESIA [None]
  - HALLUCINATION [None]
  - INSOMNIA [None]
  - CONSTIPATION [None]
